FAERS Safety Report 11258010 (Version 2)
Quarter: 2016Q2

REPORT INFORMATION
  Report Type: Report from Study
  Country: BR (occurrence: BR)
  Receive Date: 20150710
  Receipt Date: 20160426
  Transmission Date: 20160815
  Serious: Yes (Other)
  Sender: FDA-Public Use
  Company Number: PHHY2014BR036377

PATIENT
  Age: 29 Year
  Sex: Female
  Weight: 67 kg

DRUGS (2)
  1. GILENYA [Suspect]
     Active Substance: FINGOLIMOD HYDROCHLORIDE
     Dosage: UNK
     Route: 048
     Dates: end: 201511
  2. GILENYA [Suspect]
     Active Substance: FINGOLIMOD HYDROCHLORIDE
     Indication: MULTIPLE SCLEROSIS
     Dosage: 1 DF, QD
     Route: 048
     Dates: start: 201310, end: 201410

REACTIONS (11)
  - Central nervous system lesion [Not Recovered/Not Resolved]
  - Balance disorder [Recovered/Resolved]
  - Muscular weakness [Not Recovered/Not Resolved]
  - Sensory disturbance [Recovered/Resolved]
  - Gait disturbance [Recovered/Resolved]
  - Treatment failure [Unknown]
  - Multiple sclerosis relapse [Not Recovered/Not Resolved]
  - Speech disorder [Unknown]
  - Dizziness [Recovered/Resolved]
  - Multiple sclerosis relapse [Recovered/Resolved with Sequelae]
  - Balance disorder [Recovering/Resolving]

NARRATIVE: CASE EVENT DATE: 20140101
